FAERS Safety Report 19804065 (Version 1)
Quarter: 2021Q3

REPORT INFORMATION
  Report Type: Spontaneous
  Country: US (occurrence: US)
  Receive Date: 20210908
  Receipt Date: 20210908
  Transmission Date: 20211014
  Serious: Yes (Other)
  Sender: FDA-Public Use
  Company Number: US-FRESENIUS KABI-FK202109435

PATIENT
  Age: 8 Year
  Sex: Female

DRUGS (3)
  1. ETOPOSIDE (MANUFACTURER UNKNOWN) [Suspect]
     Active Substance: ETOPOSIDE
     Indication: INTRACRANIAL GERM CELL TUMOUR
     Dosage: 150 MG/M2 ON DAY 1?3 OF CYCLES 1, 3 AND 5; AND ON DAY 1?5 OF CYCLES 2, 4 AND 6
     Route: 042
  2. CARBOPLATIN (MANUFACTURER UNKNOWN) [Suspect]
     Active Substance: CARBOPLATIN
     Indication: INTRACRANIAL GERM CELL TUMOUR
     Dosage: 600 MG/M2 ON DAY 1 OF CYCLES 1, 3 AND 5
     Route: 042
  3. IFOSFAMIDE (MANUFACTURER UNKNOWN) [Suspect]
     Active Substance: IFOSFAMIDE
     Indication: INTRACRANIAL GERM CELL TUMOUR
     Dosage: 1800 MG/M2 ON DAY 1?5 OF CYCLES 2, 4 AND 6
     Route: 042

REACTIONS (10)
  - Mental status changes [Unknown]
  - Oxygen consumption increased [Unknown]
  - Pulmonary haemorrhage [Unknown]
  - Tumour lysis syndrome [Unknown]
  - Haemothorax [Unknown]
  - Haemorrhage intracranial [Unknown]
  - Hydrocephalus [Unknown]
  - Pneumothorax [Unknown]
  - Pulmonary hypertension [Unknown]
  - Respiratory distress [Unknown]
